FAERS Safety Report 4408379-1 (Version None)
Quarter: 2004Q3

REPORT INFORMATION
  Report Type: 
  Country: None (occurrence: None)
  Receive Date: 20040722
  Receipt Date: 20040712
  Transmission Date: 20050211
  Serious: Yes (Hospitalization, Other)
  Sender: FDA-Public Use
  Company Number: 2004US000787

PATIENT
  Age: 61 Year
  Sex: Male

DRUGS (4)
  1. PROGRAF [Suspect]
     Indication: LIVER TRANSPLANT
  2. INTERFERON ALFA-2B      (INTERFERON ALFA-2B) [Concomitant]
  3. RIBAVIRIN [Concomitant]
  4. FAMOTIDINE [Concomitant]

REACTIONS (6)
  - DIABETIC KETOACIDOSIS [None]
  - DIFFUSE LARGE B-CELL LYMPHOMA [None]
  - HICCUPS [None]
  - LYMPHOPROLIFERATIVE DISORDER [None]
  - RASH [None]
  - SOMNOLENCE [None]
